FAERS Safety Report 8317233-4 (Version None)
Quarter: 2012Q2

REPORT INFORMATION
  Report Type: 
  Country: None (occurrence: None)
  Receive Date: 20120427
  Receipt Date: 20120418
  Transmission Date: 20120825
  Serious: Yes (Other)
  Sender: FDA-Public Use
  Company Number: US-ABBOTT-12P-163-0925361-00

PATIENT
  Sex: Female
  Weight: 88.53 kg

DRUGS (4)
  1. UNKNOWN MEDICATIONS [Concomitant]
     Indication: RHEUMATOID ARTHRITIS
  2. HUMIRA [Suspect]
     Indication: RHEUMATOID ARTHRITIS
     Route: 058
     Dates: start: 20110101, end: 20120201
  3. UNKNOWN VITAMINS [Concomitant]
     Indication: ROUTINE HEALTH MAINTENANCE
  4. CT CONTRAST DYE [Suspect]
     Indication: PRODUCT USED FOR UNKNOWN INDICATION
     Route: 042
     Dates: start: 20120201, end: 20120201

REACTIONS (6)
  - HYPERSENSITIVITY [None]
  - GRAND MAL CONVULSION [None]
  - MIGRAINE [None]
  - NEUROMYOPATHY [None]
  - CONVULSIVE THRESHOLD LOWERED [None]
  - DOCUMENTED HYPERSENSITIVITY TO ADMINISTERED DRUG [None]
